FAERS Safety Report 5573535-6 (Version None)
Quarter: 2007Q4

REPORT INFORMATION
  Report Type: 
  Country: None (occurrence: None)
  Receive Date: 20071226
  Receipt Date: 20071220
  Transmission Date: 20080405
  Serious: Yes (Hospitalization)
  Sender: FDA-Public Use
  Company Number: IT-AVENTIS-200715487EU

PATIENT
  Age: 78 Year
  Sex: Female

DRUGS (2)
  1. LASIX [Suspect]
     Dosage: DOSE: 1 TAB
     Route: 048
     Dates: start: 20071010, end: 20071013
  2. ZESTORETIC [Suspect]
     Dosage: DOSE: 1 TAB
     Route: 048
     Dates: start: 20050101, end: 20071013

REACTIONS (2)
  - HYPOKALAEMIA [None]
  - MELAENA [None]
